FAERS Safety Report 23783752 (Version 2)
Quarter: 2024Q2

REPORT INFORMATION
  Report Type: Spontaneous
  Country: US (occurrence: US)
  Receive Date: 20240425
  Receipt Date: 20240617
  Transmission Date: 20240716
  Serious: Yes (Other)
  Sender: FDA-Public Use
  Company Number: US-PFIZER INC-202400091762

PATIENT
  Sex: Male

DRUGS (1)
  1. ZIRABEV [Suspect]
     Active Substance: BEVACIZUMAB-BVZR
     Indication: Malignant glioma

REACTIONS (2)
  - Haemorrhage intracranial [Unknown]
  - Off label use [Unknown]

NARRATIVE: CASE EVENT DATE: 20240401
